FAERS Safety Report 23494267 (Version 3)
Quarter: 2024Q1

REPORT INFORMATION
  Report Type: Report from Study
  Country: CN (occurrence: CN)
  Receive Date: 20240207
  Receipt Date: 20240320
  Transmission Date: 20240410
  Serious: Yes (Hospitalization)
  Sender: FDA-Public Use
  Company Number: CN-002147023-NVSC2024CN024928

PATIENT
  Age: 65 Year
  Sex: Female
  Weight: 65 kg

DRUGS (8)
  1. FEMARA [Suspect]
     Active Substance: LETROZOLE
     Indication: Breast cancer
     Dosage: 2.5 MG, QD
     Route: 048
     Dates: start: 20220130, end: 20240129
  2. FEMARA [Suspect]
     Active Substance: LETROZOLE
     Dosage: 150 MG, BID
     Route: 048
     Dates: start: 20220130, end: 20230726
  3. FEMARA [Suspect]
     Active Substance: LETROZOLE
     Dosage: 150 MG, BID
     Route: 048
     Dates: start: 20220130, end: 20230726
  4. FEMARA [Suspect]
     Active Substance: LETROZOLE
     Dosage: 100 MG, BID
     Route: 048
     Dates: start: 20230727, end: 20240126
  5. FEMARA [Suspect]
     Active Substance: LETROZOLE
     Dosage: 100 MG, BID
     Route: 048
     Dates: start: 20230727, end: 20240126
  6. FEMARA [Suspect]
     Active Substance: LETROZOLE
     Dosage: 2.5 MG, QD
     Route: 048
     Dates: start: 20240204
  7. FEMARA [Suspect]
     Active Substance: LETROZOLE
     Dosage: UNK
     Route: 048
     Dates: start: 20240204
  8. ACARBOSE [Concomitant]
     Active Substance: ACARBOSE
     Indication: Blood glucose increased
     Dosage: 50 MG, TID
     Route: 048
     Dates: start: 20220816, end: 20240129

REACTIONS (33)
  - Pancreatitis acute [Not Recovered/Not Resolved]
  - Pancreatic steatosis [Unknown]
  - Lymphangitis [Unknown]
  - Coronavirus infection [Unknown]
  - White blood cell count decreased [Unknown]
  - Abdominal pain [Recovering/Resolving]
  - Metastasis [Unknown]
  - Bone density abnormal [Unknown]
  - Calcification metastatic [Unknown]
  - Hepatic cyst [Unknown]
  - Renal cyst [Unknown]
  - Interleukin level increased [Unknown]
  - Duodenal ulcer [Unknown]
  - Reflux gastritis [Unknown]
  - Red blood cell count decreased [Unknown]
  - Haemoglobin decreased [Unknown]
  - Neutrophil count increased [Unknown]
  - Lymphocyte count decreased [Unknown]
  - Eosinophil count decreased [Unknown]
  - Haematocrit decreased [Unknown]
  - Mean cell volume increased [Unknown]
  - Mean cell haemoglobin increased [Unknown]
  - Plateletcrit decreased [Unknown]
  - Amylase decreased [Unknown]
  - Protein total decreased [Unknown]
  - Blood albumin decreased [Unknown]
  - Prealbumin decreased [Unknown]
  - Blood triglycerides decreased [Unknown]
  - Blood calcium decreased [Unknown]
  - Monocyte count increased [Unknown]
  - Basophil count increased [Unknown]
  - Red cell distribution width increased [Unknown]
  - Neutrophil count decreased [Unknown]

NARRATIVE: CASE EVENT DATE: 20220816
